FAERS Safety Report 8301675-7 (Version None)
Quarter: 2012Q2

REPORT INFORMATION
  Report Type: 
  Country: None (occurrence: None)
  Receive Date: 20120420
  Receipt Date: 20120416
  Transmission Date: 20120825
  Serious: Yes (Death, Life-Threatening, Hospitalization, Other)
  Sender: FDA-Public Use
  Company Number: PHHO2011FR01386

PATIENT
  Sex: Male
  Weight: 68 kg

DRUGS (33)
  1. NEORAL [Suspect]
     Dosage: 400 MG, QD
     Route: 048
     Dates: start: 20110210
  2. MYCOPHENOLATE MOFETIL (CELLCEPT) [Suspect]
     Dosage: 1 G, PER DAY
     Route: 048
     Dates: start: 20110301, end: 20110308
  3. BACTRIM [Suspect]
     Dosage: 400 MG, PER DAY
     Route: 048
     Dates: start: 20110124, end: 20110201
  4. SOLU-MEDROL [Concomitant]
     Indication: RENAL TRANSPLANT
     Dosage: 20 MG/ DAY
     Dates: start: 20110115, end: 20110115
  5. LASIX [Concomitant]
  6. ADANCOR [Concomitant]
  7. ESOMEPRAZOLE MAGNESIUM [Concomitant]
  8. CALCIDIA [Concomitant]
  9. PANTOPRAZOLE [Concomitant]
  10. RAD 666 / RAD 001A [Suspect]
     Indication: RENAL TRANSPLANT
     Dosage: 3 MG, QD
     Route: 048
     Dates: start: 20110202, end: 20110209
  11. ASPIRIN [Concomitant]
  12. SODIUM BICARBONATE [Concomitant]
  13. AMLODIPINE BESYLATE [Concomitant]
  14. ECONAZOLE NITRATE [Concomitant]
  15. AMOXICILLIN [Concomitant]
  16. NEORAL [Suspect]
     Dosage: 100 MG, QD
     Route: 048
     Dates: start: 20110227, end: 20110316
  17. NEORAL [Suspect]
     Dosage: UNK
  18. MYCOPHENOLATE MOFETIL (CELLCEPT) [Suspect]
     Indication: RENAL TRANSPLANT
     Dosage: 2 G, PER DAY
     Route: 048
     Dates: start: 20110115, end: 20110209
  19. IMODIUM [Concomitant]
  20. NEORAL [Suspect]
     Indication: RENAL TRANSPLANT
     Dosage: 400 MG, QD
     Route: 048
     Dates: start: 20110117, end: 20110201
  21. PREDNISONE TAB [Suspect]
     Indication: RENAL TRANSPLANT
     Dosage: 40 MG, PER DAY
     Route: 048
     Dates: start: 20110116
  22. SIMULECT [Concomitant]
     Indication: RENAL TRANSPLANT
     Dosage: 500 MG/ DAY
     Dates: start: 20110115, end: 20110115
  23. EPREX [Concomitant]
  24. INSULATARD NPH HUMAN [Concomitant]
  25. POTASSIUM CHLORIDE [Concomitant]
  26. NITRODERM [Concomitant]
  27. MIRTAZAPINE [Concomitant]
  28. ALUMINUM HYDROXIDE AND MAGNESIUM TRISILICATE [Concomitant]
  29. ALFUZOSIN HCL [Concomitant]
  30. ZANTAC [Suspect]
     Dosage: 150 MG, PER DAY
     Route: 048
     Dates: start: 20110202
  31. VALGANCICLOVIR [Suspect]
     Dosage: 250 MG, 9QD
     Route: 048
     Dates: start: 20110129, end: 20110201
  32. NEXIUM [Suspect]
     Dosage: 40 MG, PER DAY
     Route: 048
     Dates: start: 20110116, end: 20110201
  33. COTRIM [Concomitant]

REACTIONS (19)
  - POST PROCEDURAL HAEMORRHAGE [None]
  - CYTOMEGALOVIRUS INFECTION [None]
  - PNEUMONIA ESCHERICHIA [None]
  - ESCHERICHIA SEPSIS [None]
  - RENAL TUBULAR NECROSIS [None]
  - ASTHENIA [None]
  - KLEBSIELLA INFECTION [None]
  - DIARRHOEA [None]
  - WOUND DEHISCENCE [None]
  - ANAEMIA [None]
  - COMPLICATIONS OF TRANSPLANTED KIDNEY [None]
  - MALNUTRITION [None]
  - RENAL IMPAIRMENT [None]
  - BRONCHIAL OBSTRUCTION [None]
  - WOUND COMPLICATION [None]
  - RENAL VESSEL DISORDER [None]
  - THROMBOCYTOPENIA [None]
  - LEUKOPENIA [None]
  - ANASTOMOTIC HAEMORRHAGE [None]
